FAERS Safety Report 17877605 (Version 1)
Quarter: 2020Q2

REPORT INFORMATION
  Report Type: Spontaneous
  Country: FR (occurrence: FR)
  Receive Date: 20200609
  Receipt Date: 20200609
  Transmission Date: 20200714
  Serious: Yes (Hospitalization)
  Sender: FDA-Public Use
  Company Number: FR-PFIZER INC-2020222673

PATIENT
  Age: 48 Year
  Sex: Male
  Weight: 83 kg

DRUGS (6)
  1. MYLOTARG [Suspect]
     Active Substance: GEMTUZUMAB OZOGAMICIN
     Indication: ACUTE LEUKAEMIA
     Dosage: UNK
     Dates: start: 20200504, end: 20200519
  2. ENDOXAN [CYCLOPHOSPHAMIDE MONOHYDRATE] [Suspect]
     Active Substance: CYCLOPHOSPHAMIDE
     Indication: ACUTE LEUKAEMIA
     Dosage: 620 MG, 1X/DAY
     Route: 041
     Dates: start: 20200427, end: 20200429
  3. METHOTREXATE MYLAN [Suspect]
     Active Substance: METHOTREXATE SODIUM
     Indication: ACUTE LEUKAEMIA
     Dosage: 2030 MG
     Route: 041
     Dates: start: 20200511, end: 20200511
  4. DOXORUBICINE ACCORD [Suspect]
     Active Substance: DOXORUBICIN
     Indication: ACUTE LEUKAEMIA
     Dosage: 52 MG
     Route: 042
     Dates: start: 20200430, end: 20200430
  5. ONCOVIN [Suspect]
     Active Substance: VINCRISTINE SULFATE
     Indication: ACUTE LEUKAEMIA
     Dosage: 2 MG
     Route: 042
     Dates: start: 20200430, end: 20200506
  6. CYTARABINE SANDOZ [Suspect]
     Active Substance: CYTARABINE
     Indication: ACUTE LEUKAEMIA
     Dosage: 6100 MG, 1X/DAY
     Route: 041
     Dates: start: 20200512, end: 20200513

REACTIONS (1)
  - Myocarditis [Not Recovered/Not Resolved]

NARRATIVE: CASE EVENT DATE: 20200515
